FAERS Safety Report 24781635 (Version 1)
Quarter: 2024Q4

REPORT INFORMATION
  Report Type: Spontaneous
  Country: CO (occurrence: CO)
  Receive Date: 20241227
  Receipt Date: 20241227
  Transmission Date: 20250114
  Serious: Yes (Other)
  Sender: REGENERON
  Company Number: CO-SA-2024SA380893

PATIENT
  Age: 56 Year
  Sex: Female

DRUGS (1)
  1. PRALUENT [Suspect]
     Active Substance: ALIROCUMAB
     Indication: Hypercholesterolaemia
     Dosage: 150 MG, QOW
     Route: 058
     Dates: start: 2021

REACTIONS (6)
  - Ovarian cancer metastatic [Unknown]
  - Myalgia [Unknown]
  - Bone pain [Unknown]
  - Back pain [Unknown]
  - Abdominal pain lower [Unknown]
  - Pain [Unknown]

NARRATIVE: CASE EVENT DATE: 20220101
